FAERS Safety Report 9523320 (Version 1)
Quarter: 2013Q3

REPORT INFORMATION
  Report Type: Spontaneous
  Country: CA (occurrence: CA)
  Receive Date: 20130913
  Receipt Date: 20130913
  Transmission Date: 20140515
  Serious: Yes (Other)
  Sender: FDA-Public Use
  Company Number: CA-ASTRAZENECA-2013SE67623

PATIENT
  Age: 51 Year
  Sex: Female
  Weight: 79 kg

DRUGS (6)
  1. ENTOCORT [Suspect]
     Route: 048
  2. REMICADE [Suspect]
     Dosage: ONE EVERY EIGHT WEEK
     Route: 042
  3. CONTRACEPTIVES [Concomitant]
  4. HYDROCHLOROTHIAZIDE [Concomitant]
  5. HYDROXYCHLOROQUINE [Concomitant]
  6. METHOTREXATE [Concomitant]

REACTIONS (3)
  - Condition aggravated [Unknown]
  - Crohn^s disease [Unknown]
  - Gastrointestinal pain [Unknown]
